FAERS Safety Report 9806265 (Version 1)
Quarter: 2014Q1

REPORT INFORMATION
  Report Type: Spontaneous
  Country: FR (occurrence: None)
  Receive Date: 20140107
  Receipt Date: 20140107
  Transmission Date: 20141002
  Serious: Yes (Hospitalization)
  Sender: FDA-Public Use
  Company Number: 2013P1022321

PATIENT
  Age: 89 Year
  Sex: Female

DRUGS (2)
  1. AMIODARONE [Suspect]
     Indication: ATRIAL FIBRILLATION
     Dosage: 200 MG; 2 MONTHS
  2. DABIGATRAN [Suspect]
     Indication: ATRIAL FIBRILLATION
     Dosage: 110 MG, BID

REACTIONS (6)
  - Anaemia [None]
  - Rectal haemorrhage [None]
  - Drug interaction [None]
  - Renal disorder [None]
  - Blood creatinine increased [None]
  - Coagulopathy [None]
